FAERS Safety Report 4452140-9 (Version None)
Quarter: 2004Q3

REPORT INFORMATION
  Report Type: 
  Country: None (occurrence: None)
  Receive Date: 20040917
  Receipt Date: 20040907
  Transmission Date: 20050211
  Serious: Yes (Hospitalization)
  Sender: FDA-Public Use
  Company Number: FR-AMGEN-UK089861

PATIENT
  Age: 70 Year
  Sex: Female
  Weight: 75 kg

DRUGS (3)
  1. NEUPOGEN [Suspect]
     Indication: CHEMOTHERAPY
     Route: 058
     Dates: start: 20040324, end: 20040516
  2. TAXOL [Concomitant]
     Dates: start: 20040319
  3. CARBOPLATIN [Concomitant]
     Dates: start: 20040319

REACTIONS (5)
  - INFLAMMATION LOCALISED [None]
  - NEUTROPENIA [None]
  - PHLEBITIS [None]
  - POST PROCEDURAL COMPLICATION [None]
  - VENOUS THROMBOSIS LIMB [None]
